FAERS Safety Report 18420777 (Version 1)
Quarter: 2020Q4

REPORT INFORMATION
  Report Type: Report from Study
  Country: DZ (occurrence: DZ)
  Receive Date: 20201023
  Receipt Date: 20201023
  Transmission Date: 20210114
  Serious: Yes (Other)
  Sender: FDA-Public Use
  Company Number: DZ-SUN PHARMACEUTICAL INDUSTRIES LTD-2020RR-265139

PATIENT
  Age: 26 Month
  Sex: Female

DRUGS (1)
  1. PARACETAMOL [Suspect]
     Active Substance: ACETAMINOPHEN
     Indication: PRODUCT USED FOR UNKNOWN INDICATION
     Dosage: UNK
     Route: 065

REACTIONS (9)
  - Haematemesis [Unknown]
  - Jaundice [Unknown]
  - Seizure [Unknown]
  - Hepatic encephalopathy [Unknown]
  - Altered state of consciousness [Unknown]
  - Hepatomegaly [Unknown]
  - Hypoglycaemia [Unknown]
  - Toxicity to various agents [Unknown]
  - Accidental exposure to product by child [Unknown]
